FAERS Safety Report 16674121 (Version 2)
Quarter: 2025Q3

REPORT INFORMATION
  Report Type: Spontaneous
  Country: US (occurrence: US)
  Receive Date: 20190806
  Receipt Date: 20250924
  Transmission Date: 20251020
  Serious: No
  Sender: TEVA
  Company Number: US-TEVA-2019-US-1088180

PATIENT
  Sex: Male

DRUGS (1)
  1. TADALAFIL [Suspect]
     Active Substance: TADALAFIL
     Indication: Sexual dysfunction
     Route: 065
     Dates: start: 20190729

REACTIONS (1)
  - Drug ineffective [Unknown]

NARRATIVE: CASE EVENT DATE: 20190729
